FAERS Safety Report 5093461-9 (Version None)
Quarter: 2006Q3

REPORT INFORMATION
  Report Type: 
  Country: None (occurrence: None)
  Receive Date: 20060828
  Receipt Date: 20060808
  Transmission Date: 20061208
  Serious: Yes (Hospitalization)
  Sender: FDA-Public Use
  Company Number: S06-FRA-03350-01

PATIENT
  Age: 87 Year
  Sex: Male
  Weight: 68 kg

DRUGS (8)
  1. SEROPLEX (ESCITALOPRAM) [Suspect]
     Indication: COGNITIVE DISORDER
     Dosage: 1 UNITS QD PO
     Route: 048
     Dates: start: 20060415, end: 20060622
  2. PREVISCAN (FLUINDIONE) [Suspect]
     Indication: ARRHYTHMIA
     Dosage: 10  MG QD PO
     Route: 048
     Dates: start: 20050615, end: 20060619
  3. PULMICORT [Concomitant]
  4. COMBIVENT [Concomitant]
  5. FLECAINIDE ACETATE [Concomitant]
  6. JOSIR (TAMSULOSIN HYDROCHLORIDE) [Concomitant]
  7. ARICEPT [Concomitant]
  8. EPOGEN [Concomitant]

REACTIONS (7)
  - ACQUIRED HAEMOPHILIA [None]
  - ACUTE CORONARY SYNDROME [None]
  - ANAEMIA [None]
  - ATRIAL FIBRILLATION [None]
  - HAEMATOMA [None]
  - HAEMORRHAGE [None]
  - RHABDOMYOLYSIS [None]
